FAERS Safety Report 5674098-7 (Version None)
Quarter: 2008Q1

REPORT INFORMATION
  Report Type: 
  Country: None (occurrence: None)
  Receive Date: 20080320
  Receipt Date: 20080313
  Transmission Date: 20080703
  Serious: Yes (Other)
  Sender: FDA-Public Use
  Company Number: US-JNJFOC-20080304237

PATIENT
  Age: 39 Year
  Sex: Male
  Weight: 147.87 kg

DRUGS (3)
  1. LEVAQUIN [Suspect]
     Route: 048
  2. LEVAQUIN [Suspect]
     Indication: BRONCHITIS
     Route: 048
  3. PROZAC [Concomitant]
     Indication: DEPRESSION
     Route: 048

REACTIONS (5)
  - ANXIETY [None]
  - ARTHRALGIA [None]
  - DEPRESSION [None]
  - DYSPNOEA [None]
  - PAIN IN EXTREMITY [None]
